FAERS Safety Report 15683028 (Version 2)
Quarter: 2019Q1

REPORT INFORMATION
  Report Type: Spontaneous
  Country: SE (occurrence: SE)
  Receive Date: 20181203
  Receipt Date: 20190108
  Transmission Date: 20190417
  Serious: Yes (Other)
  Sender: FDA-Public Use
  Company Number: SE-TEVA-2018-SE-981367

PATIENT
  Age: 78 Year
  Sex: Female

DRUGS (7)
  1. CREON [Concomitant]
     Active Substance: PANCRELIPASE AMYLASE\PANCRELIPASE LIPASE\PANCRELIPASE PROTEASE
  2. CLOBETASOL [Concomitant]
     Active Substance: CLOBETASOL
  3. GLIVEC [Suspect]
     Active Substance: IMATINIB MESYLATE
     Indication: GASTRIC SARCOMA
     Route: 048
     Dates: start: 20061112, end: 20171211
  4. SOLVEZINK [Concomitant]
  5. NIFEREX [Concomitant]
  6. IMATINIB KOANAA 100 MG FILMDRAGERAD TABLETT [Suspect]
     Active Substance: IMATINIB
     Indication: GASTRIC SARCOMA
     Route: 048
     Dates: start: 20171211
  7. KLOBETASOL APL [Concomitant]

REACTIONS (1)
  - Exposed bone in jaw [Recovering/Resolving]

NARRATIVE: CASE EVENT DATE: 20181001
